FAERS Safety Report 13560939 (Version 3)
Quarter: 2017Q3

REPORT INFORMATION
  Report Type: Spontaneous
  Country: US (occurrence: US)
  Receive Date: 20170518
  Receipt Date: 20170705
  Transmission Date: 20171127
  Serious: Yes (Other)
  Sender: FDA-Public Use
  Company Number: US-INDIVIOR LIMITED-INDV-101869-2017

PATIENT
  Age: 73 Year
  Sex: Male

DRUGS (1)
  1. SUBOXONE [Suspect]
     Active Substance: BUPRENORPHINE HYDROCHLORIDE\NALOXONE HYDROCHLORIDE
     Indication: DRUG USE DISORDER
     Dosage: 1 MG DAILY (HALF A FILM A DAY)
     Route: 060

REACTIONS (3)
  - Lumbar vertebral fracture [Not Recovered/Not Resolved]
  - Sciatica [Not Recovered/Not Resolved]
  - Product preparation error [Not Recovered/Not Resolved]
